FAERS Safety Report 10071506 (Version 2)
Quarter: 2014Q2

REPORT INFORMATION
  Report Type: Spontaneous
  Country: JP (occurrence: JP)
  Receive Date: 20140410
  Receipt Date: 20140424
  Transmission Date: 20141212
  Serious: Yes (Other)
  Sender: FDA-Public Use
  Company Number: JP-BAXTER-2014BAX017216

PATIENT
  Age: 37 Year
  Sex: Male

DRUGS (1)
  1. GAMMAGARD FOR INJECTION 2.5G [Suspect]
     Indication: GUILLAIN-BARRE SYNDROME
     Route: 042

REACTIONS (1)
  - Drug ineffective [Not Recovered/Not Resolved]
